FAERS Safety Report 18129919 (Version 2)
Quarter: 2020Q3

REPORT INFORMATION
  Report Type: Spontaneous
  Country: US (occurrence: US)
  Receive Date: 20200810
  Receipt Date: 20200826
  Transmission Date: 20201103
  Serious: Yes (Hospitalization)
  Sender: FDA-Public Use
  Company Number: US-INTRA-CELLULAR THERAPIES, INC.-2020ICT00043

PATIENT
  Age: 38 Year
  Sex: Male

DRUGS (3)
  1. CAPLYTA [Suspect]
     Active Substance: LUMATEPERONE
     Indication: SCHIZOPHRENIA
     Dosage: UNK
     Dates: start: 20200703
  2. FLUPHENAZINE [Suspect]
     Active Substance: FLUPHENAZINE
     Dosage: UNK
  3. CAPLYTA [Suspect]
     Active Substance: LUMATEPERONE
     Indication: BIPOLAR DISORDER

REACTIONS (12)
  - Product use in unapproved indication [Not Recovered/Not Resolved]
  - Feeling abnormal [Not Recovered/Not Resolved]
  - Pancreatic disorder [Unknown]
  - Dizziness [Not Recovered/Not Resolved]
  - Abnormal behaviour [Unknown]
  - Pain [Not Recovered/Not Resolved]
  - Asthenia [Not Recovered/Not Resolved]
  - Depression [Not Recovered/Not Resolved]
  - Dry mouth [Not Recovered/Not Resolved]
  - Personality change [Not Recovered/Not Resolved]
  - Blood glucose increased [Unknown]
  - Nausea [Not Recovered/Not Resolved]

NARRATIVE: CASE EVENT DATE: 2020
